FAERS Safety Report 10093371 (Version 1)
Quarter: 2014Q2

REPORT INFORMATION
  Report Type: Spontaneous
  Country: US (occurrence: US)
  Receive Date: 20140421
  Receipt Date: 20140421
  Transmission Date: 20141212
  Serious: No
  Sender: FDA-Public Use
  Company Number: US-SANOFI-AVENTIS-2013SA056894

PATIENT
  Age: 86 Year
  Sex: Female

DRUGS (2)
  1. ALLEGRA [Suspect]
     Indication: UPPER-AIRWAY COUGH SYNDROME
     Route: 048
     Dates: start: 20130531
  2. LEVOFLOXACIN [Concomitant]

REACTIONS (2)
  - Condition aggravated [Unknown]
  - Underdose [Unknown]
